FAERS Safety Report 8455422-9 (Version None)
Quarter: 2012Q2

REPORT INFORMATION
  Report Type: 
  Country: None (occurrence: None)
  Receive Date: 20120621
  Receipt Date: 20120618
  Transmission Date: 20120825
  Serious: Yes (Death)
  Sender: FDA-Public Use
  Company Number: US-BRISTOL-MYERS SQUIBB COMPANY-16676686

PATIENT
  Age: 63 Year
  Sex: Male

DRUGS (3)
  1. ERBITUX [Suspect]
     Indication: LARYNGEAL CANCER
     Dosage: LAST DOSE ON 13MAR12
     Dates: start: 20120201, end: 20120313
  2. ERBITUX [Suspect]
     Indication: OROPHARYNGEAL CANCER STAGE UNSPECIFIED
     Dosage: LAST DOSE ON 13MAR12
     Dates: start: 20120201, end: 20120313
  3. ERBITUX [Suspect]
     Indication: THROAT CANCER
     Dosage: LAST DOSE ON 13MAR12
     Dates: start: 20120201, end: 20120313

REACTIONS (2)
  - PNEUMONIA [None]
  - NEOPLASM MALIGNANT [None]
